FAERS Safety Report 21202942 (Version 5)
Quarter: 2022Q3

REPORT INFORMATION
  Report Type: Spontaneous
  Country: US (occurrence: US)
  Receive Date: 20220811
  Receipt Date: 20220915
  Transmission Date: 20221027
  Serious: Yes (Hospitalization, Other)
  Sender: FDA-Public Use
  Company Number: US-PFIZER INC-PV202200041257

PATIENT
  Age: 61 Year
  Sex: Female

DRUGS (1)
  1. IBRANCE [Suspect]
     Active Substance: PALBOCICLIB
     Dosage: UNK

REACTIONS (11)
  - Thrombosis [Unknown]
  - Myalgia [Unknown]
  - Fatigue [Recovered/Resolved]
  - Insomnia [Unknown]
  - Stomatitis [Unknown]
  - Anaemia [Unknown]
  - Dyspnoea [Unknown]
  - Lip dry [Unknown]
  - Dry skin [Unknown]
  - Diarrhoea [Unknown]
  - Decreased appetite [Unknown]
